FAERS Safety Report 11659241 (Version 1)
Quarter: 2015Q4

REPORT INFORMATION
  Report Type: Spontaneous
  Country: US (occurrence: None)
  Receive Date: 20151023
  Receipt Date: 20151023
  Transmission Date: 20160304
  Serious: No
  Sender: FDA-Public Use
  Company Number: None

PATIENT

DRUGS (1)
  1. HUMIRA [Suspect]
     Active Substance: ADALIMUMAB
     Dosage: 40 MG (0.8 ML) EVERY 2 WEEKS SUBCUTANEOUS
     Route: 058

REACTIONS (5)
  - Diarrhoea [None]
  - Nausea [None]
  - Tension headache [None]
  - Muscle spasms [None]
  - Alopecia [None]
